FAERS Safety Report 15081794 (Version 1)
Quarter: 2018Q2

REPORT INFORMATION
  Report Type: Spontaneous
  Country: US (occurrence: US)
  Receive Date: 20180628
  Receipt Date: 20180628
  Transmission Date: 20180711
  Serious: No
  Sender: FDA-Public Use
  Company Number: US-PFIZER INC-2018258275

PATIENT
  Sex: Male

DRUGS (1)
  1. ADVIL [Suspect]
     Active Substance: IBUPROFEN
     Indication: HAEMORRHOIDS
     Dosage: UNK

REACTIONS (2)
  - Intentional product misuse [Unknown]
  - Haemorrhoidal haemorrhage [Unknown]
